FAERS Safety Report 6963838-2 (Version None)
Quarter: 2010Q3

REPORT INFORMATION
  Report Type: 
  Country: None (occurrence: None)
  Receive Date: 20100830
  Receipt Date: 20100820
  Transmission Date: 20110219
  Serious: Yes (Death, Hospitalization)
  Sender: FDA-Public Use
  Company Number: 8038374

PATIENT
  Sex: Female
  Weight: 48 kg

DRUGS (20)
  1. CERTOLIZUMAB PEGOL (CERTOLIZUMAB PEGOL) [Suspect]
     Dosage: SEE IMAGE
     Route: 058
     Dates: end: 20030106
  2. CERTOLIZUMAB PEGOL (CERTOLIZUMAB PEGOL) [Suspect]
     Dosage: SEE IMAGE
     Route: 058
     Dates: start: 20050101, end: 20080613
  3. CERTOLIZUMAB PEGOL (CERTOLIZUMAB PEGOL) [Suspect]
     Dosage: SEE IMAGE
     Route: 058
     Dates: start: 20040714
  4. SALOFALK /00000301/ [Concomitant]
  5. PREDNISOLONUM [Concomitant]
  6. HEPABENE [Concomitant]
  7. ADEMETIONINE [Concomitant]
  8. OMEPRAZOLE [Concomitant]
  9. ALBUMIN (HUMAN) [Concomitant]
  10. PLASMA [Concomitant]
  11. VEROSPIRON [Concomitant]
  12. ASPARCAM /01580901/ [Concomitant]
  13. HEPADIF /00799501/ [Concomitant]
  14. SODIUM THIOSULFATE [Concomitant]
  15. GLUTARGIN /01615901/ [Concomitant]
  16. ESSENTIALE /000022201/ [Concomitant]
  17. ULTOP /00661201/ [Concomitant]
  18. GLUOCSE [Concomitant]
  19. AVELOX [Concomitant]
  20. CIFRAN [Concomitant]

REACTIONS (14)
  - AUTOIMMUNE HEPATITIS [None]
  - BILIARY CIRRHOSIS [None]
  - BLOOD CREATININE INCREASED [None]
  - BLOOD POTASSIUM DECREASED [None]
  - BLOOD PRESSURE DECREASED [None]
  - BLOOD SODIUM DECREASED [None]
  - BLOOD UREA INCREASED [None]
  - CHOLANGITIS [None]
  - CHOLECYSTITIS [None]
  - CHOLESTASIS [None]
  - CONDITION AGGRAVATED [None]
  - CROHN'S DISEASE [None]
  - HEPATIC FAILURE [None]
  - PORTAL HYPERTENSION [None]
